FAERS Safety Report 12650762 (Version 1)
Quarter: 2016Q3

REPORT INFORMATION
  Report Type: Spontaneous
  Country: US (occurrence: US)
  Receive Date: 20160815
  Receipt Date: 20160815
  Transmission Date: 20161109
  Serious: No
  Sender: FDA-Public Use
  Company Number: US-JAZZ-2016-US-004856

PATIENT
  Sex: Female

DRUGS (24)
  1. LIDOCAINE. [Concomitant]
     Active Substance: LIDOCAINE
  2. LIDOCAINE HCL [Concomitant]
     Active Substance: LIDOCAINE HYDROCHLORIDE
  3. OMEPRAZOLE DR [Concomitant]
     Active Substance: OMEPRAZOLE
  4. BENADRYL [Concomitant]
     Active Substance: DIPHENHYDRAMINE HYDROCHLORIDE
  5. NUVIGIL [Concomitant]
     Active Substance: ARMODAFINIL
  6. TOVIAZ [Concomitant]
     Active Substance: FESOTERODINE FUMARATE
  7. XYREM [Suspect]
     Active Substance: SODIUM OXYBATE
     Indication: CATAPLEXY
     Dosage: DOSE ADJUSTMENTS
     Route: 048
  8. WELLBUTRIN XL [Concomitant]
     Active Substance: BUPROPION HYDROCHLORIDE
  9. ADDERALL XR [Concomitant]
     Active Substance: AMPHETAMINE ASPARTATE\AMPHETAMINE SULFATE\DEXTROAMPHETAMINE SACCHARATE\DEXTROAMPHETAMINE SULFATE
  10. XYREM [Suspect]
     Active Substance: SODIUM OXYBATE
     Indication: NARCOLEPSY
     Dosage: 2.25 G, BID
     Route: 048
     Dates: start: 200406, end: 200407
  11. XYREM [Suspect]
     Active Substance: SODIUM OXYBATE
     Dosage: 4.5 G, BID
     Dates: start: 201409
  12. LYRICA [Concomitant]
     Active Substance: PREGABALIN
  13. TRIMETHOPRIM. [Concomitant]
     Active Substance: TRIMETHOPRIM
  14. METFORMIN HYDROCHLORIDE. [Concomitant]
     Active Substance: METFORMIN HYDROCHLORIDE
  15. OXYCODONE HCL IR [Concomitant]
  16. AMMONIUM LACTATE. [Concomitant]
     Active Substance: AMMONIUM LACTATE
  17. TRIAMCINOLONE [Concomitant]
     Active Substance: TRIAMCINOLONE
  18. BUPROPION HYDROCHLORIDE XL [Concomitant]
     Active Substance: BUPROPION HYDROCHLORIDE
  19. CIPRO [Concomitant]
     Active Substance: CIPROFLOXACIN HYDROCHLORIDE
  20. CITALOPRAM [Concomitant]
     Active Substance: CITALOPRAM HYDROBROMIDE
  21. FLAVOXATE HCL [Concomitant]
  22. GEMFIBROZIL. [Concomitant]
     Active Substance: GEMFIBROZIL
  23. ADDERALL [Concomitant]
     Active Substance: AMPHETAMINE ASPARTATE\AMPHETAMINE SULFATE\DEXTROAMPHETAMINE SACCHARATE\DEXTROAMPHETAMINE SULFATE
  24. LOSARTAN POTASSIUM. [Concomitant]
     Active Substance: LOSARTAN POTASSIUM

REACTIONS (3)
  - Unevaluable event [Unknown]
  - Fall [Unknown]
  - Skin abrasion [Not Recovered/Not Resolved]
